FAERS Safety Report 16348317 (Version 4)
Quarter: 2020Q2

REPORT INFORMATION
  Report Type: Report from Study
  Country: CA (occurrence: CA)
  Receive Date: 20190523
  Receipt Date: 20200624
  Transmission Date: 20200713
  Serious: Yes (Other)
  Sender: FDA-Public Use
  Company Number: CA-JNJFOC-20190518116

PATIENT
  Sex: Female
  Weight: 68 kg

DRUGS (3)
  1. REMICADE [Suspect]
     Active Substance: INFLIXIMAB
     Indication: CROHN^S DISEASE
     Route: 042
     Dates: start: 20180214
  2. REMICADE [Suspect]
     Active Substance: INFLIXIMAB
     Indication: COLITIS ULCERATIVE
     Route: 042
  3. REMICADE [Suspect]
     Active Substance: INFLIXIMAB
     Route: 042

REACTIONS (7)
  - Intestinal obstruction [Unknown]
  - Off label use [Unknown]
  - Bone disorder [Unknown]
  - Malignant polyp [Unknown]
  - Emphysema [Unknown]
  - Pulmonary mass [Unknown]
  - Product use issue [Unknown]

NARRATIVE: CASE EVENT DATE: 2018
